FAERS Safety Report 5508284-3 (Version None)
Quarter: 2007Q4

REPORT INFORMATION
  Report Type: 
  Country: None (occurrence: None)
  Receive Date: 20071106
  Receipt Date: 20071016
  Transmission Date: 20080405
  Serious: No
  Sender: FDA-Public Use
  Company Number: US-BOEHRINGER INGELHEIM PHARMACEUTICALS, INC.-2007-BP-18623BP

PATIENT
  Age: 43 Year
  Sex: Female

DRUGS (3)
  1. COMBIVENT [Suspect]
     Indication: ASTHMA
     Route: 055
  2. PULMICORT [Concomitant]
  3. DUONEB [Concomitant]

REACTIONS (3)
  - DYSGEUSIA [None]
  - HEADACHE [None]
  - PAROSMIA [None]
